FAERS Safety Report 6206902-8 (Version None)
Quarter: 2009Q2

REPORT INFORMATION
  Report Type: 
  Country: None (occurrence: None)
  Receive Date: 20090528
  Receipt Date: 20090515
  Transmission Date: 20091009
  Serious: Yes (Hospitalization)
  Sender: FDA-Public Use
  Company Number: A0772356A

PATIENT
  Age: 52 Year
  Sex: Male
  Weight: 100 kg

DRUGS (5)
  1. AVANDIA [Suspect]
     Indication: DRUG USE FOR UNKNOWN INDICATION
     Route: 065
     Dates: start: 20030301, end: 20070601
  2. STARLIX [Concomitant]
     Dates: start: 20010401, end: 20030101
  3. DIABETA [Concomitant]
     Dates: start: 20010401
  4. LIPITOR [Concomitant]
     Dates: start: 20010401, end: 20080301
  5. ASPIRIN [Concomitant]
     Dosage: 81MG PER DAY

REACTIONS (8)
  - ACUTE CORONARY SYNDROME [None]
  - ASTHENIA [None]
  - BLOOD CHOLESTEROL ABNORMAL [None]
  - CORONARY ARTERY OCCLUSION [None]
  - HEART INJURY [None]
  - HYPOAESTHESIA [None]
  - MYOCARDIAL INFARCTION [None]
  - MYOCARDIAL ISCHAEMIA [None]
